FAERS Safety Report 19922816 (Version 1)
Quarter: 2021Q4

REPORT INFORMATION
  Report Type: Spontaneous
  Country: US (occurrence: US)
  Receive Date: 20211005
  Receipt Date: 20211005
  Transmission Date: 20220303
  Serious: Yes (Hospitalization, Other)
  Sender: FDA-Public Use
  Company Number: None

PATIENT
  Age: 62 Year
  Sex: Female
  Weight: 51.71 kg

DRUGS (1)
  1. REGEN-COV [Suspect]
     Active Substance: CASIRIVIMAB\IMDEVIMAB
     Indication: COVID-19 treatment
     Dates: start: 20210928, end: 20210928

REACTIONS (7)
  - Dyspnoea [None]
  - Hypotension [None]
  - Blood pressure systolic increased [None]
  - Dizziness [None]
  - Asthenia [None]
  - Hypersensitivity [None]
  - Hypoxia [None]

NARRATIVE: CASE EVENT DATE: 20210928
